FAERS Safety Report 8273953-1 (Version None)
Quarter: 2012Q2

REPORT INFORMATION
  Report Type: 
  Country: None (occurrence: None)
  Receive Date: 20120411
  Receipt Date: 20120402
  Transmission Date: 20120825
  Serious: Yes (Hospitalization, Other)
  Sender: FDA-Public Use
  Company Number: US-AMGEN-USASP2011061089

PATIENT
  Sex: Female

DRUGS (6)
  1. ENBREL [Suspect]
     Indication: OSTEOARTHRITIS
  2. INDOMETHACIN [Concomitant]
     Indication: PSORIATIC ARTHROPATHY
     Dosage: 50 MG, BID
     Route: 048
     Dates: start: 19870101
  3. PREDNISONE [Concomitant]
     Indication: PSORIATIC ARTHROPATHY
     Dosage: 5 MG, PRN
     Route: 048
     Dates: start: 19960601
  4. ENBREL [Suspect]
     Indication: PSORIATIC ARTHROPATHY
     Dosage: 25 MG, 2 TIMES/WK
     Route: 058
     Dates: start: 20041014
  5. METHOTREXATE [Suspect]
     Indication: PSORIATIC ARTHROPATHY
     Dosage: 22.5 MG, QWK
     Route: 030
     Dates: start: 19900101
  6. BENAZEPRIL HYDROCHLORIDE [Concomitant]
     Indication: HYPERTENSION
     Dosage: 10 MG, QD
     Route: 048

REACTIONS (9)
  - ARTHRITIS [None]
  - FUNGAL SKIN INFECTION [None]
  - PSORIATIC ARTHROPATHY [None]
  - JOINT SWELLING [None]
  - BRONCHITIS [None]
  - SINUSITIS [None]
  - PAIN [None]
  - PAIN IN EXTREMITY [None]
  - FATIGUE [None]
